FAERS Safety Report 6218134-8 (Version None)
Quarter: 2009Q2

REPORT INFORMATION
  Report Type: 
  Country: None (occurrence: None)
  Receive Date: 20090608
  Receipt Date: 20090528
  Transmission Date: 20091009
  Serious: No
  Sender: FDA-Public Use
  Company Number: PHHY2009FR22172

PATIENT
  Age: 70 Year
  Sex: Male

DRUGS (6)
  1. ACLASTA [Suspect]
     Indication: OSTEOPOROSIS
     Dosage: UNK
     Dates: start: 20090515
  2. PLAVIX [Concomitant]
  3. HYPERIUM [Concomitant]
  4. BIPRETERAX [Concomitant]
  5. IKOREL [Concomitant]
     Dosage: 10 MG, UNK
  6. DISCOTRINE [Concomitant]

REACTIONS (1)
  - CHEST PAIN [None]
